FAERS Safety Report 10755465 (Version 1)
Quarter: 2015Q1

REPORT INFORMATION
  Report Type: Spontaneous
  Country: US (occurrence: None)
  Receive Date: 20150123
  Receipt Date: 20150123
  Transmission Date: 20150721
  Serious: Yes (Other)
  Sender: FDA-Public Use
  Company Number: TPA2011A05937

PATIENT
  Age: 12 Year
  Sex: Female

DRUGS (2)
  1. PREVACID SOLUTAB [Suspect]
     Active Substance: LANSOPRAZOLE
  2. ETHOSUXIMIDE. [Concomitant]
     Active Substance: ETHOSUXIMIDE

REACTIONS (2)
  - Condition aggravated [None]
  - Seizure [None]
